FAERS Safety Report 8183064-1 (Version None)
Quarter: 2012Q1

REPORT INFORMATION
  Report Type: 
  Country: None (occurrence: None)
  Receive Date: 20120305
  Receipt Date: 20120227
  Transmission Date: 20120608
  Serious: Yes (Other)
  Sender: FDA-Public Use
  Company Number: US-BAYER-2011-074175

PATIENT
  Sex: Male
  Weight: 35.828 kg

DRUGS (4)
  1. DOXIL [Concomitant]
     Dosage: EVERY 21 DAYS
  2. NEXAVAR [Suspect]
     Indication: HEPATIC NEOPLASM MALIGNANT
     Dosage: 200 MG, BID
     Dates: start: 20110523
  3. METOCLOPRAMIDE [Concomitant]
     Dosage: UNK
     Dates: start: 20110101
  4. CISPLATIN [Concomitant]
     Indication: HEPATIC NEOPLASM MALIGNANT
     Dosage: EVERY 21 DAYS

REACTIONS (6)
  - VOMITING [None]
  - ASTHENIA [None]
  - FATIGUE [None]
  - QUALITY OF LIFE DECREASED [None]
  - WEIGHT DECREASED [None]
  - NAUSEA [None]
